FAERS Safety Report 4873612-9 (Version None)
Quarter: 2005Q4

REPORT INFORMATION
  Report Type: 
  Country: None (occurrence: None)
  Receive Date: 20051201
  Receipt Date: 20050823
  Transmission Date: 20060501
  Serious: No
  Sender: FDA-Public Use
  Company Number: 2005PV001485

PATIENT
  Age: 69 Year
  Sex: Female
  Weight: 72.1219 kg

DRUGS (7)
  1. BYETTA [Suspect]
     Indication: DIABETES MELLITUS NON-INSULIN-DEPENDENT
     Dosage: 10 MCG; 5 MCG : BID; SC
     Route: 058
     Dates: end: 20050816
  2. BYETTA [Suspect]
     Indication: DIABETES MELLITUS NON-INSULIN-DEPENDENT
     Dosage: 10 MCG; 5 MCG : BID; SC
     Route: 058
     Dates: start: 20050817
  3. GLUCOPHAGE [Concomitant]
  4. LIPITOR [Concomitant]
  5. GLUCOVANCE [Concomitant]
  6. SYNTHROID [Concomitant]
  7. FOSAMAX [Concomitant]

REACTIONS (3)
  - BLOOD GLUCOSE DECREASED [None]
  - DRUG EFFECT DECREASED [None]
  - URINARY TRACT INFECTION [None]
